FAERS Safety Report 6123129-9 (Version None)
Quarter: 2009Q1

REPORT INFORMATION
  Report Type: 
  Country: None (occurrence: None)
  Receive Date: 20090318
  Receipt Date: 20090310
  Transmission Date: 20090719
  Serious: Yes (Other)
  Sender: FDA-Public Use
  Company Number: US-ELI_LILLY_AND_COMPANY-US200903002586

PATIENT
  Sex: Female

DRUGS (5)
  1. GLUCAGON [Suspect]
  2. EVISTA [Suspect]
  3. CORTEF [Concomitant]
     Indication: ADDISON'S DISEASE
  4. SYNTHROID [Concomitant]
     Indication: HYPOTHYROIDISM
  5. NOVOLOG [Concomitant]

REACTIONS (8)
  - ARTHRITIS [None]
  - DYSPNOEA [None]
  - HYPERSENSITIVITY [None]
  - HYPERTENSION [None]
  - NAUSEA [None]
  - PRURITUS GENERALISED [None]
  - THROAT TIGHTNESS [None]
  - URTICARIA [None]
